FAERS Safety Report 6884825-9 (Version None)
Quarter: 2010Q3

REPORT INFORMATION
  Report Type: 
  Country: None (occurrence: None)
  Receive Date: 20100729
  Receipt Date: 20070917
  Transmission Date: 20110219
  Serious: No
  Sender: FDA-Public Use
  Company Number: US-PFIZER INC-2007075711

PATIENT
  Sex: Female
  Weight: 57.15 kg

DRUGS (10)
  1. CELEBREX [Suspect]
     Indication: RHEUMATOID ARTHRITIS
     Dosage: BID: EVERY DAY
  2. PREDNISONE [Concomitant]
  3. FUROSEMIDE [Concomitant]
     Indication: OEDEMA PERIPHERAL
  4. FOSAMAX [Concomitant]
  5. METHOTREXATE [Concomitant]
  6. FOLIC ACID [Concomitant]
  7. MULTI-VITAMINS [Concomitant]
  8. ASCORBIC ACID [Concomitant]
  9. ATENOLOL [Concomitant]
     Indication: HEART RATE IRREGULAR
  10. PREVACID [Concomitant]

REACTIONS (6)
  - ABDOMINAL PAIN UPPER [None]
  - DECREASED APPETITE [None]
  - HYPERKERATOSIS [None]
  - PAIN [None]
  - PRURITUS [None]
  - WEIGHT DECREASED [None]
